FAERS Safety Report 4911162-1 (Version None)
Quarter: 2006Q1

REPORT INFORMATION
  Report Type: 
  Country: None (occurrence: None)
  Receive Date: 20060209
  Receipt Date: 20060126
  Transmission Date: 20060701
  Serious: Yes (Other)
  Sender: FDA-Public Use
  Company Number: BR-2006-001841

PATIENT
  Age: 63 Year
  Sex: Female

DRUGS (1)
  1. BETAFERON (INTERFERON BETA -1B) INJECTION, 250UG [Suspect]
     Indication: MULTIPLE SCLEROSIS
     Dosage: 8 MIU, SUBCUTANEOUS
     Route: 058
     Dates: start: 20000101

REACTIONS (5)
  - GASTRIC HYPOMOTILITY [None]
  - HIATUS HERNIA [None]
  - PROCEDURAL COMPLICATION [None]
  - THYROID OPERATION [None]
  - VISUAL DISTURBANCE [None]
